FAERS Safety Report 8310341-3 (Version None)
Quarter: 2012Q2

REPORT INFORMATION
  Report Type: 
  Country: None (occurrence: None)
  Receive Date: 20120425
  Receipt Date: 20120423
  Transmission Date: 20120825
  Serious: Yes (Death, Hospitalization, Other)
  Sender: FDA-Public Use
  Company Number: PHHY2012FR030689

PATIENT
  Sex: Male
  Weight: 75 kg

DRUGS (23)
  1. ZYVOX [Concomitant]
  2. ACUPAN [Concomitant]
  3. NEORAL [Concomitant]
     Dosage: 100 MG, BID
  4. PHENOXYMETHYL PENICILLIN [Concomitant]
     Indication: PNEUMONIA PNEUMOCOCCAL
  5. TRIMEPRAZINE TARTRATE [Concomitant]
  6. ATOVAQUONE [Concomitant]
  7. SEREVENT [Concomitant]
  8. VALACYCLOVIR HYDROCHLORIDE [Concomitant]
  9. XANAX [Concomitant]
  10. LASIX [Concomitant]
  11. MYFORTIC [Concomitant]
     Dosage: 360 MG, BID
  12. AMBISOME [Concomitant]
     Dosage: 250 MG,
  13. MUCOMYST [Concomitant]
  14. ESOMEPRAZOLE MAGNESIUM [Concomitant]
  15. ESCITALOPRAM [Concomitant]
  16. PREDNISONE TAB [Concomitant]
  17. TASIGNA [Suspect]
     Indication: CHRONIC MYELOID LEUKAEMIA
     Dosage: 400 MG DAILY
     Route: 048
     Dates: start: 20100212
  18. MORPHINE [Concomitant]
  19. RECTOQUOTANE [Concomitant]
  20. EUPRESSYL [Concomitant]
  21. HUMALOG [Concomitant]
  22. CALCIUM CARBONATE [Concomitant]
  23. NICARDIPINE HYDROCHLORIDE [Concomitant]
     Dosage: 50 MG, BID

REACTIONS (3)
  - CARDIAC ARREST [None]
  - MALAISE [None]
  - GRAFT VERSUS HOST DISEASE [None]
